FAERS Safety Report 9646420 (Version 1)
Quarter: 2013Q4

REPORT INFORMATION
  Report Type: Spontaneous
  Country: GB (occurrence: GB)
  Receive Date: 20131025
  Receipt Date: 20131025
  Transmission Date: 20140711
  Serious: Yes (Other)
  Sender: FDA-Public Use
  Company Number: PHHY2013GB117672

PATIENT
  Age: 38 Year
  Sex: Female

DRUGS (9)
  1. QUETIAPINE [Suspect]
     Indication: PSYCHOTIC DISORDER
     Dosage: 50 MG, BID
     Route: 048
  2. MICROGYNON [Suspect]
     Indication: MENORRHAGIA
     Dosage: 1 DF, QD ONE DAILY FOR 21 DAYS OF CYCLE.
     Route: 048
     Dates: end: 20131008
  3. PYRIDOXINE HYDROCHLORIDE [Concomitant]
  4. LEVOCETIRIZINE DIHYDROCHLORIDE [Concomitant]
  5. CO-CODAMOL [Concomitant]
  6. IBUPROFEN [Concomitant]
  7. LANSOPRAZOLE [Concomitant]
  8. CARBAMAZEPINE [Concomitant]
  9. SUMATRIPTAN SUCCINATE [Concomitant]

REACTIONS (1)
  - Deep vein thrombosis [Recovering/Resolving]
